FAERS Safety Report 4482880-7 (Version None)
Quarter: 2004Q4

REPORT INFORMATION
  Report Type: 
  Country: None (occurrence: None)
  Receive Date: 20041022
  Receipt Date: 20041015
  Transmission Date: 20050328
  Serious: Yes (Hospitalization, Other)
  Sender: FDA-Public Use
  Company Number: BR-MERCK-0410BRA00380

PATIENT
  Age: 50 Year
  Sex: Male

DRUGS (3)
  1. VIOXX [Suspect]
     Indication: BONE PAIN
     Route: 048
     Dates: start: 20000701, end: 20040930
  2. ACETAMINOPHEN AND CODEINE PHOSPHATE [Concomitant]
     Indication: BONE PAIN
     Route: 048
     Dates: start: 20000601, end: 20001201
  3. TRAMADOL HYDROCHLORIDE [Concomitant]
     Indication: BONE PAIN
     Route: 048
     Dates: start: 20000601, end: 20001201

REACTIONS (1)
  - MYOCARDIAL INFARCTION [None]
